FAERS Safety Report 12147104 (Version 1)
Quarter: 2016Q1

REPORT INFORMATION
  Report Type: Spontaneous
  Country: US (occurrence: US)
  Receive Date: 20160304
  Receipt Date: 20160304
  Transmission Date: 20160526
  Serious: Yes (Hospitalization, Other)
  Sender: FDA-Public Use
  Company Number: US-RB PHARMACEUTICALS LIMITED-RB-50678-2013

PATIENT
  Age: 0 Year
  Sex: Male

DRUGS (4)
  1. INFANT FORMULA [Suspect]
     Active Substance: DIETARY SUPPLEMENT
     Indication: ROUTINE HEALTH MAINTENANCE
     Dosage: UNK DOSE OF OZ AS NEEDED
     Route: 048
     Dates: start: 20121205
  2. SUBUTEX [Suspect]
     Active Substance: BUPRENORPHINE HYDROCHLORIDE
     Indication: DRUG DEPENDENCE
     Dosage: 8  MG DAILY FOR ABOUT 8 MONTHS
     Route: 064
     Dates: start: 201204, end: 20121205
  3. BUPRENORPHINE GENERIC TAB [Suspect]
     Active Substance: BUPRENORPHINE
     Indication: DRUG DEPENDENCE
     Dosage: UNK
     Route: 064
     Dates: start: 2012, end: 20121205
  4. NICOTINE. [Suspect]
     Active Substance: NICOTINE
     Indication: NICOTINE DEPENDENCE
     Dosage: 10 CIGARETTES A DAY FOR 9 MONTHS
     Route: 064
     Dates: start: 2012, end: 20121205

REACTIONS (4)
  - Foetal exposure during pregnancy [Recovered/Resolved]
  - Maternal drugs affecting foetus [None]
  - Drug withdrawal syndrome neonatal [Recovered/Resolved]
  - Foetal exposure during pregnancy [None]

NARRATIVE: CASE EVENT DATE: 201204
